FAERS Safety Report 15704345 (Version 1)
Quarter: 2018Q4

REPORT INFORMATION
  Report Type: Report from Study
  Country: NL (occurrence: NL)
  Receive Date: 20181210
  Receipt Date: 20181210
  Transmission Date: 20190205
  Serious: Yes (Life-Threatening, Hospitalization)
  Sender: FDA-Public Use
  Company Number: -ASTRAZENECA-2018SF61225

PATIENT
  Age: 1 Year
  Sex: Male

DRUGS (1)
  1. SYNAGIS [Suspect]
     Active Substance: PALIVIZUMAB
     Indication: HEART DISEASE CONGENITAL
     Dosage: MONTHLY
     Route: 030
     Dates: start: 20181204

REACTIONS (1)
  - Procedural complication [Recovered/Resolved]

NARRATIVE: CASE EVENT DATE: 2018
